FAERS Safety Report 11898195 (Version 1)
Quarter: 2016Q1

REPORT INFORMATION
  Report Type: Report from Study
  Country: ES (occurrence: ES)
  Receive Date: 20160108
  Receipt Date: 20160108
  Transmission Date: 20160526
  Serious: Yes (Other)
  Sender: FDA-Public Use
  Company Number: PHHY2015ES173073

PATIENT

DRUGS (1)
  1. ILARIS [Suspect]
     Active Substance: CANAKINUMAB
     Indication: CRYOPYRIN ASSOCIATED PERIODIC SYNDROME
     Route: 065

REACTIONS (1)
  - Tonsillitis [Recovered/Resolved]

NARRATIVE: CASE EVENT DATE: 20150601
